FAERS Safety Report 5239503-9 (Version None)
Quarter: 2007Q1

REPORT INFORMATION
  Report Type: 
  Country: None (occurrence: None)
  Receive Date: 20070214
  Receipt Date: 20070214
  Transmission Date: 20070707
  Serious: Yes (Other)
  Sender: FDA-Public Use
  Company Number: None

PATIENT
  Age: 71 Year
  Sex: Female

DRUGS (6)
  1. LYRICA [Suspect]
     Indication: TRIGEMINAL NEURALGIA
     Dosage: 200 MG  TID PO
     Route: 048
  2. DILTIAZEM [Concomitant]
  3. DOCUSATE SODIUM [Concomitant]
  4. LAMICTAL [Concomitant]
  5. TRILEPTAL [Concomitant]
  6. TRAZODONE HCL [Concomitant]

REACTIONS (2)
  - DIZZINESS [None]
  - FALL [None]
